FAERS Safety Report 8779315 (Version 1)
Quarter: 2012Q4

REPORT INFORMATION
  Report Type: Report from Study
  Country: US (occurrence: US)
  Receive Date: 20120912
  Receipt Date: 20120912
  Transmission Date: 20130627
  Serious: Yes (Death)
  Sender: FDA-Public Use
  Company Number: US-CELGENEUS-163-20785-12090510

PATIENT
  Age: 59 Year
  Sex: Male

DRUGS (34)
  1. THALOMID [Suspect]
     Indication: MULTIPLE MYELOMA
     Dosage: 200 Milligram
     Route: 048
     Dates: start: 20050604
  2. THALOMID [Suspect]
     Dosage: 50 Milligram
     Route: 048
     Dates: end: 20070118
  3. THALOMID [Suspect]
     Dates: end: 20070914
  4. REVLIMID [Suspect]
     Indication: MULTIPLE MYELOMA
     Dosage: 15 Milligram
     Route: 048
     Dates: start: 20070914
  5. DEXAMETHASONE [Suspect]
     Indication: MULTIPLE MYELOMA
     Dosage: 40 Milligram
     Route: 065
     Dates: start: 20050604
  6. DEXAMETHASONE [Suspect]
     Dosage: 20 Milligram
     Route: 065
     Dates: end: 20070105
  7. DEXAMETHASONE [Suspect]
     Dosage: 4 Milligram
     Route: 065
  8. VELCADE [Suspect]
     Indication: MULTIPLE MYELOMA
     Dosage: 1 milligram/sq. meter
     Route: 065
     Dates: start: 20050601
  9. VELCADE [Suspect]
     Dosage: 1 milligram/sq. meter
     Route: 065
     Dates: end: 20070105
  10. VELCADE [Suspect]
     Route: 065
  11. MELPHALAN [Suspect]
     Indication: MULTIPLE MYELOMA
     Dosage: 200 milligram/sq. meter
     Route: 048
     Dates: start: 20050723, end: 20050723
  12. MELPHALAN [Suspect]
     Dosage: 200 milligram/sq. meter
     Route: 048
     Dates: start: 20050921, end: 20050921
  13. CISPLATIN [Suspect]
     Indication: MULTIPLE MYELOMA
     Dosage: 10 milligram/sq. meter
     Route: 065
     Dates: start: 20050604
  14. CISPLATIN [Suspect]
     Dosage: 7.5 milligram/sq. meter
     Route: 065
     Dates: end: 20051230
  15. ADRIAMYCIN [Suspect]
     Indication: MULTIPLE MYELOMA
     Dosage: 10 milligram/sq. meter
     Route: 065
     Dates: start: 20050604
  16. ADRIAMYCIN [Suspect]
     Dosage: 7.5 milligram/sq. meter
     Route: 065
     Dates: end: 20051213
  17. CYCLOPHOSPHAMIDE [Suspect]
     Indication: MULTIPLE MYELOMA
     Dosage: 400 milligram/sq. meter
     Route: 065
     Dates: start: 20050604
  18. CYCLOPHOSPHAMIDE [Suspect]
     Dosage: 300 milligram/sq. meter
     Route: 065
     Dates: end: 20051230
  19. ETOPOSIDE [Suspect]
     Indication: MULTIPLE MYELOMA
     Dosage: 40 milligram/sq. meter
     Route: 065
     Dates: start: 20050604
  20. ETOPOSIDE [Suspect]
     Dosage: 30 milligram/sq. meter
     Route: 065
     Dates: end: 20051230
  21. COUMADIN [Concomitant]
     Indication: DRUG USE FOR UNKNOWN INDICATION
     Dosage: 5 Milligram
     Route: 065
  22. LITHIUM CARBONATE [Concomitant]
     Indication: DRUG USE FOR UNKNOWN INDICATION
     Dosage: 300 Milligram
     Route: 048
  23. ACYCLOVIR [Concomitant]
     Indication: DRUG USE FOR UNKNOWN INDICATION
     Dosage: 400 Milligram
     Route: 048
  24. ZANTAC [Concomitant]
     Indication: DRUG USE FOR UNKNOWN INDICATION
     Dosage: 300 Milligram
     Route: 048
  25. CALCARB [Concomitant]
     Indication: DRUG USE FOR UNKNOWN INDICATION
     Dosage: 600-400mg
     Route: 048
  26. MULTI-DAY [Concomitant]
     Indication: DRUG USE FOR UNKNOWN INDICATION
     Dosage: 1 Tablet
     Route: 048
  27. IBUPROFEN [Concomitant]
     Indication: DRUG USE FOR UNKNOWN INDICATION
     Dosage: 200 Milligram
     Route: 065
  28. LOVENOX [Concomitant]
     Indication: DRUG USE FOR UNKNOWN INDICATION
     Dosage: 40mg/0.4ml
     Route: 058
  29. AREDIA [Concomitant]
     Indication: DRUG USE FOR UNKNOWN INDICATION
     Route: 041
     Dates: end: 200708
  30. COLACE [Concomitant]
     Indication: DRUG USE FOR UNKNOWN INDICATION
     Dosage: 200 Milligram
     Route: 065
  31. SENNA [Concomitant]
     Indication: DRUG USE FOR UNKNOWN INDICATION
     Route: 048
  32. PSYLLIUM [Concomitant]
     Indication: DRUG USE FOR UNKNOWN INDICATION
     Route: 048
  33. ASPIR-TRIN [Concomitant]
     Indication: DRUG USE FOR UNKNOWN INDICATION
     Dosage: 325 Milligram
     Route: 065
  34. AMBIEN [Concomitant]
     Indication: SLEEPLESSNESS
     Dosage: 10 Milligram
     Route: 065

REACTIONS (1)
  - Acute myeloid leukaemia [Fatal]
